FAERS Safety Report 7846010-3 (Version None)
Quarter: 2011Q4

REPORT INFORMATION
  Report Type: 
  Country: None (occurrence: None)
  Receive Date: 20111025
  Receipt Date: 20111019
  Transmission Date: 20120403
  Serious: Yes (Hospitalization)
  Sender: FDA-Public Use
  Company Number: US-MILLENNIUM PHARMACEUTICALS, INC.-2011-04991

PATIENT
  Age: 68 Year
  Sex: Female

DRUGS (2)
  1. VELCADE [Suspect]
     Indication: MULTIPLE MYELOMA
     Dosage: 1.6 MG/M2, CYCLIC
     Route: 042
     Dates: start: 20110412, end: 20110713
  2. DEXAMETHASONE SODIUM PHOSPHATE [Suspect]
     Indication: MULTIPLE MYELOMA
     Dosage: 20 MG, CYCLIC
     Route: 042
     Dates: start: 20110404, end: 20110713

REACTIONS (3)
  - MUCOSAL INFLAMMATION [None]
  - PERIODONTAL INFECTION [None]
  - THROMBOSIS PROPHYLAXIS [None]
